FAERS Safety Report 20140668 (Version 1)
Quarter: 2021Q4

REPORT INFORMATION
  Report Type: Spontaneous
  Country: BR (occurrence: BR)
  Receive Date: 20211202
  Receipt Date: 20211202
  Transmission Date: 20220303
  Serious: Yes (Other)
  Sender: FDA-Public Use
  Company Number: BR-NOVARTISPH-NVSC2019BR041834

PATIENT
  Sex: Female

DRUGS (1)
  1. TIMOLOL\TRAVOPROST [Suspect]
     Active Substance: TIMOLOL\TRAVOPROST
     Indication: Glaucoma
     Dosage: 1 GTT, QD (SINCE 7 YEARS)
     Route: 047

REACTIONS (6)
  - Cerebrovascular accident [Unknown]
  - Dacryostenosis acquired [Unknown]
  - Depression [Unknown]
  - Bone atrophy [Unknown]
  - Blister [Unknown]
  - Eye discharge [Unknown]
